FAERS Safety Report 10352796 (Version 1)
Quarter: 2014Q3

REPORT INFORMATION
  Report Type: Spontaneous
  Country: US (occurrence: US)
  Receive Date: 20140730
  Receipt Date: 20140730
  Transmission Date: 20150326
  Serious: No
  Sender: FDA-Public Use
  Company Number: US-ABBVIE-13P-163-1170943-00

PATIENT
  Age: 57 Year
  Sex: Female
  Weight: 63.56 kg

DRUGS (3)
  1. SYNTHROID [Suspect]
     Active Substance: LEVOTHYROXINE SODIUM
     Indication: THYROID DISORDER
  2. CYTOMEL [Concomitant]
     Active Substance: LIOTHYRONINE SODIUM
     Indication: HYPOTHYROIDISM
  3. SYNTHROID [Suspect]
     Active Substance: LEVOTHYROXINE SODIUM
     Indication: HYPOTHYROIDISM

REACTIONS (7)
  - Arthralgia [Recovered/Resolved]
  - Fatigue [Recovered/Resolved]
  - Thyroid function test abnormal [Recovered/Resolved]
  - Product quality issue [None]
  - Drug dispensing error [Recovered/Resolved]
  - Abdominal pain upper [Recovered/Resolved]
  - Hypothyroidism [Recovered/Resolved]

NARRATIVE: CASE EVENT DATE: 201310
